FAERS Safety Report 15213576 (Version 1)
Quarter: 2018Q3

REPORT INFORMATION
  Report Type: Spontaneous
  Country: US (occurrence: US)
  Receive Date: 20180702
  Receipt Date: 20180702
  Transmission Date: 20181010
  Serious: Yes (Life-Threatening, Hospitalization)
  Sender: FDA-Public Use
  Company Number: None

PATIENT
  Age: 83 Year
  Sex: Male
  Weight: 86.64 kg

DRUGS (1)
  1. WARFARIN [Suspect]
     Active Substance: WARFARIN
     Indication: EMBOLISM ARTERIAL
     Dates: start: 20160706

REACTIONS (3)
  - Hepatic enzyme increased [None]
  - Haemorrhage [None]
  - International normalised ratio abnormal [None]

NARRATIVE: CASE EVENT DATE: 20180621
